FAERS Safety Report 17209186 (Version 4)
Quarter: 2020Q1

REPORT INFORMATION
  Report Type: Spontaneous
  Country: JP (occurrence: JP)
  Receive Date: 20191227
  Receipt Date: 20200304
  Transmission Date: 20200409
  Serious: Yes (Hospitalization, Disabling, Other)
  Sender: FDA-Public Use
  Company Number: JP-NOVOPROD-703832

PATIENT
  Age: 48 Year
  Sex: Male
  Weight: 85 kg

DRUGS (7)
  1. HEMLIBRA [Suspect]
     Active Substance: EMICIZUMAB-KXWH
     Indication: FACTOR VIII DEFICIENCY
     Dosage: 150MG
     Route: 058
     Dates: start: 201812
  2. BYCLOT [Suspect]
     Active Substance: COAGULATION FACTOR VII HUMAN\COAGULATION FACTOR X HUMAN
     Indication: INTRA-ABDOMINAL HAEMORRHAGE
     Dosage: 4V
     Route: 042
     Dates: start: 20191213, end: 20191213
  3. NOVOSEVEN [Suspect]
     Active Substance: COAGULATION FACTOR VIIA RECOMBINANT HUMAN
     Indication: HAEMOPHILIA A WITH ANTI FACTOR VIII
     Dosage: 8MG (8.50AM)
     Route: 042
     Dates: start: 20191213
  4. NOVOSEVEN [Suspect]
     Active Substance: COAGULATION FACTOR VIIA RECOMBINANT HUMAN
     Indication: INTRA-ABDOMINAL HAEMORRHAGE
     Dosage: 8MG WAS ADMINISTERED PRIOR TO SHEATH REMOVAL (1.00 PM)
     Route: 042
     Dates: start: 20191213
  5. NOVOSEVEN [Suspect]
     Active Substance: COAGULATION FACTOR VIIA RECOMBINANT HUMAN
     Dosage: 8 MG, BID (AT 0 AND 6 O^CLOCK)
     Route: 042
     Dates: start: 20191215, end: 20191215
  6. NOVOSEVEN [Suspect]
     Active Substance: COAGULATION FACTOR VIIA RECOMBINANT HUMAN
     Dosage: 8 MG, TID (AT 0, 6, 12 AND 18 O^CLOCK)
     Route: 042
     Dates: start: 20191214
  7. NOVOSEVEN [Suspect]
     Active Substance: COAGULATION FACTOR VIIA RECOMBINANT HUMAN
     Dosage: 8MG (6.00 PM)
     Route: 042
     Dates: start: 20191213

REACTIONS (1)
  - Cerebral infarction [Recovered/Resolved]

NARRATIVE: CASE EVENT DATE: 20191215
